FAERS Safety Report 14295324 (Version 1)
Quarter: 2017Q4

REPORT INFORMATION
  Report Type: Spontaneous
  Country: US (occurrence: US)
  Receive Date: 20171218
  Receipt Date: 20171218
  Transmission Date: 20180321
  Serious: No
  Sender: FDA-Public Use
  Company Number: US-PFIZER INC-2017531469

PATIENT
  Age: 57 Year
  Sex: Female

DRUGS (13)
  1. LODINE [Suspect]
     Active Substance: ETODOLAC
     Dosage: UNK
  2. ULTRAM [Suspect]
     Active Substance: TRAMADOL HYDROCHLORIDE
     Dosage: UNK
  3. RELAFEN [Suspect]
     Active Substance: NABUMETONE
     Dosage: UNK
  4. MOBIC [Suspect]
     Active Substance: MELOXICAM
     Dosage: UNK
  5. FELDENE [Suspect]
     Active Substance: PIROXICAM
     Dosage: UNK
  6. LEVAQUIN [Suspect]
     Active Substance: LEVOFLOXACIN
     Dosage: UNK
  7. IBUPROFEN. [Suspect]
     Active Substance: IBUPROFEN
     Dosage: UNK
  8. CELLCEPT [Suspect]
     Active Substance: MYCOPHENOLATE MOFETIL\MYCOPHENOLATE MOFETIL HYDROCHLORIDE
     Dosage: UNK
  9. DARVOCET-N 100 [Suspect]
     Active Substance: ACETAMINOPHEN\PROPOXYPHENE NAPSYLATE
     Dosage: UNK
  10. CELEBREX [Suspect]
     Active Substance: CELECOXIB
     Dosage: UNK
  11. DICLOFENAC SODIUM. [Suspect]
     Active Substance: DICLOFENAC SODIUM
     Dosage: UNK
  12. VIOXX [Suspect]
     Active Substance: ROFECOXIB
     Dosage: UNK
  13. LEFLUNOMIDE. [Suspect]
     Active Substance: LEFLUNOMIDE
     Dosage: UNK

REACTIONS (1)
  - Drug hypersensitivity [Unknown]
